FAERS Safety Report 20361752 (Version 2)
Quarter: 2023Q2

REPORT INFORMATION
  Report Type: Spontaneous
  Country: CN (occurrence: CN)
  Receive Date: 20220121
  Receipt Date: 20230508
  Transmission Date: 20230722
  Serious: Yes (Life-Threatening, Hospitalization, Other)
  Sender: FDA-Public Use
  Company Number: CN-NOVARTISPH-NVSC2022CN011873

PATIENT
  Age: 61 Year
  Sex: Male
  Weight: 73.8 kg

DRUGS (2)
  1. LEQVIO [Suspect]
     Active Substance: INCLISIRAN SODIUM
     Indication: Hyperlipidaemia
     Dosage: 284 MG,(1 BRANCH EVERY TIME, ONCE 180 DAYS)
     Route: 058
     Dates: start: 20210701
  2. LEQVIO [Suspect]
     Active Substance: INCLISIRAN SODIUM
     Dosage: 284 MG, (1 BRANCH EVERY TIME, ONCE 180 DAYS)
     Route: 058
     Dates: start: 20211008

REACTIONS (5)
  - Ischaemic stroke [Unknown]
  - Decreased nasolabial fold [Unknown]
  - Hemiplegia [Recovering/Resolving]
  - Dyspraxia [Recovering/Resolving]
  - Tongue disorder [Unknown]

NARRATIVE: CASE EVENT DATE: 20220116
